FAERS Safety Report 19869137 (Version 1)
Quarter: 2021Q3

REPORT INFORMATION
  Report Type: Spontaneous
  Country: CN (occurrence: CN)
  Receive Date: 20210922
  Receipt Date: 20210922
  Transmission Date: 20211014
  Serious: Yes (Other)
  Sender: FDA-Public Use
  Company Number: CN-PFIZER INC-202101192224

PATIENT
  Age: 27 Year
  Sex: Female
  Weight: 45 kg

DRUGS (2)
  1. AZITHROMYCIN ANHYDROUS. [Suspect]
     Active Substance: AZITHROMYCIN ANHYDROUS
     Indication: ANTIINFLAMMATORY THERAPY
     Dosage: 0.5 G, 1X/DAY
     Route: 041
     Dates: start: 20210901, end: 20210901
  2. GLUCOSE [Concomitant]
     Active Substance: DEXTROSE
     Indication: VEHICLE SOLUTION USE
     Dosage: 500 ML, 1X/DAY
     Route: 041
     Dates: start: 20210901, end: 20210901

REACTIONS (5)
  - Off label use [Unknown]
  - Dysphonia [Recovered/Resolved]
  - Laryngeal oedema [Recovered/Resolved]
  - Rash erythematous [Recovering/Resolving]
  - Hypersensitivity [Recovered/Resolved]

NARRATIVE: CASE EVENT DATE: 20210901
